APPROVED DRUG PRODUCT: EMTRICITABINE AND TENOFOVIR DISOPROXIL FUMARATE
Active Ingredient: EMTRICITABINE; TENOFOVIR DISOPROXIL FUMARATE
Strength: 200MG;300MG
Dosage Form/Route: TABLET;ORAL
Application: A090894 | Product #001 | TE Code: AB
Applicant: TEVA PHARMACEUTICALS USA INC
Approved: Jun 8, 2017 | RLD: No | RS: No | Type: RX